FAERS Safety Report 11324450 (Version 1)
Quarter: 2015Q3

REPORT INFORMATION
  Report Type: Spontaneous
  Country: None (occurrence: GB)
  Receive Date: 20150730
  Receipt Date: 20150730
  Transmission Date: 20151125
  Serious: Yes (Death, Hospitalization)
  Sender: FDA-Public Use
  Company Number: GB-MEDAC PHARMA, INC.-1040854

PATIENT
  Age: 82 Year
  Sex: Female

DRUGS (1)
  1. METOJECT PEN, A PRE-FILLED METHOTREXATE [Suspect]
     Active Substance: METHOTREXATE

REACTIONS (2)
  - Death [Fatal]
  - Hospitalisation [Unknown]

NARRATIVE: CASE EVENT DATE: 20150628
